FAERS Safety Report 11499155 (Version 2)
Quarter: 2016Q4

REPORT INFORMATION
  Report Type: Spontaneous
  Country: US (occurrence: US)
  Receive Date: 20150913
  Receipt Date: 20161222
  Transmission Date: 20170206
  Serious: Yes (Other)
  Sender: FDA-Public Use
  Company Number: US-ELI_LILLY_AND_COMPANY-US201509002833

PATIENT
  Sex: Female
  Weight: 53 kg

DRUGS (1)
  1. CYMBALTA [Suspect]
     Active Substance: DULOXETINE HYDROCHLORIDE
     Indication: NEURALGIA
     Dosage: 60 MG, QD
     Route: 048

REACTIONS (10)
  - Sleep disorder [Unknown]
  - Vertigo [Unknown]
  - Irritability [Unknown]
  - Suicidal ideation [Unknown]
  - Withdrawal syndrome [Unknown]
  - Dizziness [Unknown]
  - Anxiety [Unknown]
  - Paraesthesia [Unknown]
  - Mood swings [Unknown]
  - Agitation [Unknown]
